FAERS Safety Report 9920655 (Version 1)
Quarter: 2014Q1

REPORT INFORMATION
  Report Type: Spontaneous
  Country: US (occurrence: US)
  Receive Date: 20140224
  Receipt Date: 20140224
  Transmission Date: 20141002
  Serious: No
  Sender: FDA-Public Use
  Company Number: US-NOVEN-14US008622

PATIENT
  Age: 32 Year
  Sex: Female

DRUGS (29)
  1. MINIVELLE [Suspect]
     Indication: HORMONE REPLACEMENT THERAPY
     Dosage: 0.0375 MG/DAY, TWICE WEEKLY
     Route: 062
  2. RIZATRIPTAN [Concomitant]
     Indication: MIGRAINE
     Dosage: 10 MG, Q 2HR.
     Route: 048
  3. PROMETHAZINE [Concomitant]
     Indication: NAUSEA
     Dosage: 12.5 MG, Q 4-6 HRS
     Route: 048
  4. DICYCLOMINE                        /00068601/ [Concomitant]
     Indication: GASTROINTESTINAL PAIN
     Dosage: 10 MG, Q 6HR.
     Route: 048
  5. DICYCLOMINE                        /00068601/ [Concomitant]
     Indication: STRESS
  6. BELLADONNA ALKALOIDS [Concomitant]
     Indication: GASTROINTESTINAL PAIN
     Dosage: 1-2 TABS, Q 6 HRS AS NEEDED
     Route: 048
  7. BELLADONNA ALKALOIDS [Concomitant]
     Indication: STRESS
  8. DEXILANT [Concomitant]
     Indication: GASTROOESOPHAGEAL REFLUX DISEASE
     Dosage: 60 MG, BID
     Route: 048
  9. HYOSCYAMINE [Concomitant]
     Indication: IRRITABLE BOWEL SYNDROME
     Dosage: 0.375 MG, BID
     Route: 048
  10. FLUTICASONE PROPIONATE [Concomitant]
     Indication: SEASONAL ALLERGY
     Dosage: 2 SPRAYS IN EACH NOSTRIL, BEDTIME
     Route: 050
  11. MONTELUKAST [Concomitant]
     Indication: SEASONAL ALLERGY
     Dosage: 10 MG, QD
     Route: 048
  12. PROCHLORPERAZINE [Concomitant]
     Indication: NAUSEA
     Dosage: 10 MG, Q 6 HRS AS NEEDED
     Route: 048
  13. FERAHEME [Concomitant]
     Indication: ANAEMIA
     Dosage: 510 MG, UNK
     Route: 042
  14. BUPROPION [Concomitant]
     Indication: DEPRESSION
     Dosage: 150 MG, QID
     Route: 048
  15. BUSPIRONE [Concomitant]
     Indication: DEPRESSION
     Dosage: 15 MG, QID
     Route: 048
  16. LAMOTRIGINE [Concomitant]
     Indication: DEPRESSION
     Dosage: 200 MG, EVENING
     Route: 048
  17. ALPRAZOLAM [Concomitant]
     Indication: ANXIETY
     Dosage: 0.5 MG, PRN
     Route: 048
  18. PRAZOSIN [Concomitant]
     Indication: ABNORMAL DREAMS
     Dosage: 2 MG, BEDTIME
     Route: 048
  19. PRAVASTATIN [Concomitant]
     Indication: PRODUCT USED FOR UNKNOWN INDICATION
     Dosage: 20 MG, BEDTIME
     Route: 048
  20. GAVISCON                           /00237601/ [Concomitant]
     Indication: GASTROOESOPHAGEAL REFLUX DISEASE
     Dosage: 4 TABS, 4 TIMES/DAY, AS NEEDED
     Route: 048
  21. MYLANTA GAS [Concomitant]
     Indication: FLATULENCE
     Dosage: 1-2 TABLETS, AS NEEDED
     Route: 048
  22. PHAZYME                            /00164001/ [Concomitant]
     Indication: FLATULENCE
     Dosage: 1-2 PILLS AS NEEDED AFTER MEALS
     Route: 048
  23. MAGNESIUM [Concomitant]
     Indication: MUSCLE SPASMS
     Dosage: 400 MG, PRN, ONCE A WEEK
  24. CO Q-10 [Concomitant]
     Indication: MUSCLE SPASMS
     Dosage: UNK
  25. UBIQUINOL [Concomitant]
     Indication: MUSCLE SPASMS
     Dosage: 100 MG, PRN
  26. IBUPROFEN [Concomitant]
     Indication: PAIN
     Dosage: 200 MG, PRN
  27. ACETAMINOPHEN [Concomitant]
     Indication: PAIN
     Dosage: 500 MG, PRN
  28. BENGAY [Concomitant]
     Indication: PAIN
     Dosage: UNK
     Route: 061
  29. ALLEGRA [Concomitant]
     Indication: SEASONAL ALLERGY
     Dosage: 180 MG, PRN
     Route: 048

REACTIONS (4)
  - Wrong technique in drug usage process [Not Recovered/Not Resolved]
  - Drug dose omission [Not Recovered/Not Resolved]
  - Product quality issue [Not Recovered/Not Resolved]
  - No adverse event [None]
